FAERS Safety Report 13929302 (Version 2)
Quarter: 2018Q3

REPORT INFORMATION
  Report Type: Report from Study
  Country: None (occurrence: GB)
  Receive Date: 20170901
  Receipt Date: 20180806
  Transmission Date: 20181010
  Serious: Yes (Other)
  Sender: FDA-Public Use
  Company Number: GB-ABBVIE-17K-167-2090429-00

PATIENT
  Age: 58 Year
  Sex: Male
  Weight: 131.7 kg

DRUGS (2)
  1. HUMIRA [Suspect]
     Active Substance: ADALIMUMAB
     Indication: PSORIASIS
     Route: 058
     Dates: start: 20120413, end: 20130601
  2. VENTOLIN [Concomitant]
     Active Substance: ALBUTEROL SULFATE
     Indication: PRODUCT USED FOR UNKNOWN INDICATION
     Dates: start: 19630701

REACTIONS (2)
  - Basal cell carcinoma [Recovered/Resolved]
  - Neoplasm skin [Recovered/Resolved]

NARRATIVE: CASE EVENT DATE: 20170220
